FAERS Safety Report 7004706-X (Version None)
Quarter: 2010Q3

REPORT INFORMATION
  Report Type: 
  Country: None (occurrence: None)
  Receive Date: 20100921
  Receipt Date: 20100916
  Transmission Date: 20110219
  Serious: Yes (Death)
  Sender: FDA-Public Use
  Company Number: PHHY2010US61803

PATIENT
  Sex: Male

DRUGS (7)
  1. RECLAST [Suspect]
     Dosage: 5 MG
     Route: 042
  2. DILTIAZEM [Concomitant]
     Dosage: 120 MG, BID
  3. SEROQUEL [Concomitant]
     Dosage: UNK
  4. GALANTAMINE [Concomitant]
     Dosage: UNK
  5. WARFARIN SODIUM [Concomitant]
     Dosage: UNK
  6. LORATADINE [Concomitant]
     Dosage: UNK
  7. ULORIC [Concomitant]
     Dosage: UNK

REACTIONS (3)
  - CARDIAC FAILURE CONGESTIVE [None]
  - GENERAL PHYSICAL HEALTH DETERIORATION [None]
  - INTESTINAL OBSTRUCTION [None]
